FAERS Safety Report 6716755-7 (Version None)
Quarter: 2010Q2

REPORT INFORMATION
  Report Type: 
  Country: None (occurrence: None)
  Receive Date: 20100510
  Receipt Date: 20100506
  Transmission Date: 20101027
  Serious: No
  Sender: FDA-Public Use
  Company Number: US-BIOGENIDEC-2010BI015002

PATIENT
  Age: 37 Year
  Sex: Male

DRUGS (2)
  1. AVONEX [Suspect]
     Indication: MULTIPLE SCLEROSIS
     Route: 030
     Dates: start: 20100322, end: 20100412
  2. AVONEX [Suspect]
     Route: 030
     Dates: start: 20100419

REACTIONS (3)
  - CHILLS [None]
  - COLD SWEAT [None]
  - DIZZINESS [None]
